FAERS Safety Report 5480530-4 (Version None)
Quarter: 2007Q4

REPORT INFORMATION
  Report Type: 
  Country: None (occurrence: None)
  Receive Date: 20071004
  Receipt Date: 20071004
  Transmission Date: 20080405
  Serious: Yes (Hospitalization)
  Sender: FDA-Public Use
  Company Number: None

PATIENT
  Sex: Female
  Weight: 68.7 kg

DRUGS (5)
  1. TEMOZOLOMIDE [Suspect]
     Dosage: 3640 MG
  2. BACTRIM [Concomitant]
  3. DEXAMETHASONE 0.5MG TAB [Concomitant]
  4. KEPPRA [Concomitant]
  5. OVC HERBS AND SUPPLEMENTS [Concomitant]

REACTIONS (6)
  - ANORECTAL CELLULITIS [None]
  - APLASTIC ANAEMIA [None]
  - BLOOD PRODUCT TRANSFUSION DEPENDENT [None]
  - BONE MARROW FAILURE [None]
  - HAEMORRHOIDS [None]
  - PYREXIA [None]
